FAERS Safety Report 7861150-0 (Version None)
Quarter: 2011Q4

REPORT INFORMATION
  Report Type: 
  Country: None (occurrence: None)
  Receive Date: 20111027
  Receipt Date: 20111018
  Transmission Date: 20120403
  Serious: Yes (Hospitalization)
  Sender: FDA-Public Use
  Company Number: US-ASTRAZENECA-2010SE54474

PATIENT
  Age: 69 Year
  Sex: Female

DRUGS (3)
  1. NEXIUM [Suspect]
     Route: 048
  2. TOPROL-XL [Suspect]
     Route: 048
  3. CRESTOR [Suspect]
     Route: 048

REACTIONS (5)
  - LUNG INFILTRATION [None]
  - PNEUMONIA [None]
  - DIABETIC COMPLICATION [None]
  - MALAISE [None]
  - GASTRIC DISORDER [None]
